FAERS Safety Report 9400114 (Version 1)
Quarter: 2013Q3

REPORT INFORMATION
  Report Type: Spontaneous
  Country: US (occurrence: US)
  Receive Date: 20130715
  Receipt Date: 20130715
  Transmission Date: 20140515
  Serious: Yes (Hospitalization)
  Sender: FDA-Public Use
  Company Number: US-COVIDIEN/TYCO HEALTHCARE/MALLINCKRODT-T201303618

PATIENT
  Sex: Female

DRUGS (2)
  1. GABLOFEN [Suspect]
     Indication: MUSCLE SPASTICITY
     Dosage: 25 MCG/DAY
     Route: 037
  2. SALINE /00075401/ [Suspect]
     Dosage: 0.048 ML/DAY

REACTIONS (2)
  - Abasia [Unknown]
  - Drug effect decreased [Unknown]
